FAERS Safety Report 12336196 (Version 1)
Quarter: 2016Q2

REPORT INFORMATION
  Report Type: Spontaneous
  Country: US (occurrence: None)
  Receive Date: 20160504
  Receipt Date: 20160504
  Transmission Date: 20160815
  Serious: Yes (Disabling)
  Sender: FDA-Public Use
  Company Number: None

PATIENT
  Age: 32 Year
  Sex: Female
  Weight: 72.58 kg

DRUGS (2)
  1. ZYRTEC [Concomitant]
     Active Substance: CETIRIZINE HYDROCHLORIDE
  2. RHINOCORT [Suspect]
     Active Substance: BUDESONIDE
     Indication: SEASONAL ALLERGY
     Dosage: 120 SPRAY(S) ONCE A DAY INHALATION
     Route: 055

REACTIONS (6)
  - Lethargy [None]
  - Cough [None]
  - Oropharyngeal pain [None]
  - Anxiety [None]
  - Depression [None]
  - Impaired work ability [None]

NARRATIVE: CASE EVENT DATE: 20160502
